FAERS Safety Report 8974209 (Version 1)
Quarter: 2012Q4

REPORT INFORMATION
  Report Type: Spontaneous
  Country: JP (occurrence: None)
  Receive Date: 20121211
  Receipt Date: 20121211
  Transmission Date: 20130627
  Serious: Yes (Other)
  Sender: FDA-Public Use
  Company Number: ADR-2012-02207

PATIENT
  Sex: Male
  Weight: 65 kg

DRUGS (2)
  1. GABALON [Suspect]
  2. LAMISIL CREAM 1%; VOLLEY LIQUID 1%; SP TROCHES [Concomitant]

REACTIONS (2)
  - Nasopharyngitis [None]
  - Tinea pedis [None]
